FAERS Safety Report 21209946 (Version 1)
Quarter: 2022Q3

REPORT INFORMATION
  Report Type: Spontaneous
  Country: CN (occurrence: CN)
  Receive Date: 20220813
  Receipt Date: 20220813
  Transmission Date: 20221027
  Serious: Yes (Other)
  Sender: FDA-Public Use
  Company Number: CN-NOVARTISPH-NVSC2022CN183693

PATIENT
  Age: 52 Year
  Sex: Female
  Weight: 67 kg

DRUGS (7)
  1. TISLELIZUMAB [Suspect]
     Active Substance: TISLELIZUMAB
     Indication: Bile duct cancer
     Dosage: 200 MG (NS 100ML ONCE FOR THE INDICATION)
     Route: 041
     Dates: start: 20220427
  2. CAPECITABINE [Suspect]
     Active Substance: CAPECITABINE
     Indication: Bile duct cancer
     Dosage: 1.5 G, BID (D1-D14)
     Route: 048
     Dates: start: 20220426
  3. OXALIPLATIN [Suspect]
     Active Substance: OXALIPLATIN
     Indication: Bile duct cancer
     Dosage: UNK (5 PERCENT GS 500ML)
     Route: 041
     Dates: start: 20220426
  4. ACETYLCYSTEINE [Suspect]
     Active Substance: ACETYLCYSTEINE
     Indication: Product used for unknown indication
     Dosage: UNK (10 PERCENT GS 250ML IVGTT)
     Route: 042
     Dates: start: 20220518, end: 20220529
  5. GLUTATHIONE [Suspect]
     Active Substance: GLUTATHIONE
     Indication: Product used for unknown indication
     Dosage: UNK (5 PERCENT GS 250ML IVGTT)
     Route: 042
     Dates: start: 20220518, end: 20220529
  6. DEXTROSE [Concomitant]
     Active Substance: DEXTROSE
     Indication: Product used for unknown indication
     Dosage: UNK
     Route: 065
     Dates: start: 20220426
  7. SODIUM CHLORIDE [Concomitant]
     Active Substance: SODIUM CHLORIDE
     Indication: Product used for unknown indication
     Dosage: UNK
     Route: 065
     Dates: start: 20220427

REACTIONS (1)
  - Transaminases increased [Recovering/Resolving]
